FAERS Safety Report 17631773 (Version 1)
Quarter: 2020Q2

REPORT INFORMATION
  Report Type: Spontaneous
  Country: US (occurrence: US)
  Receive Date: 20200406
  Receipt Date: 20200406
  Transmission Date: 20200713
  Serious: Yes (Life-Threatening, Hospitalization, Disabling)
  Sender: FDA-Public Use
  Company Number: None

PATIENT
  Age: 50 Year
  Sex: Female
  Weight: 55.8 kg

DRUGS (1)
  1. TEGRETOL [Suspect]
     Active Substance: CARBAMAZEPINE
     Indication: CRANIAL NERVE INJURY
     Route: 048

REACTIONS (4)
  - Seizure [None]
  - Stevens-Johnson syndrome [None]
  - Arrhythmia [None]
  - Syncope [None]

NARRATIVE: CASE EVENT DATE: 20200307
